APPROVED DRUG PRODUCT: AGRYLIN
Active Ingredient: ANAGRELIDE HYDROCHLORIDE
Strength: EQ 1MG BASE **Federal Register determination that product was not discontinued or withdrawn for safety or effectiveness reasons**
Dosage Form/Route: CAPSULE;ORAL
Application: N020333 | Product #002
Applicant: TAKEDA PHARMACEUTICALS USA INC
Approved: Mar 14, 1997 | RLD: Yes | RS: No | Type: DISCN